FAERS Safety Report 23279813 (Version 2)
Quarter: 2023Q4

REPORT INFORMATION
  Report Type: Spontaneous
  Country: US (occurrence: US)
  Receive Date: 20231209
  Receipt Date: 20231212
  Transmission Date: 20240110
  Serious: No
  Sender: FDA-Public Use
  Company Number: US-JNJFOC-20231216269

PATIENT
  Sex: Female

DRUGS (3)
  1. NEUTROGENA HEALTHY DEFENSE DAILY MOISTURIZER SUNSCREEN BROAD SPECTRUM [Suspect]
     Active Substance: AVOBENZONE\HOMOSALATE\OCTISALATE\OCTOCRYLENE\OXYBENZONE
     Indication: Dry skin prophylaxis
     Route: 061
     Dates: start: 19980123
  2. NEUTROGENA HEALTHY DEFENSE DAILY MOISTURIZER SUNSCREEN BROAD SPECTRUM [Suspect]
     Active Substance: AVOBENZONE\HOMOSALATE\OCTISALATE\OCTOCRYLENE\OXYBENZONE
     Indication: Prophylaxis against solar radiation
  3. NEUTROGENA HEALTHY DEFENSE DAILY MOISTURIZER SUNSCREEN BROAD SPECTRUM [Suspect]
     Active Substance: AVOBENZONE\HOMOSALATE\OCTISALATE\OCTOCRYLENE\OXYBENZONE
     Indication: Malignant melanoma

REACTIONS (1)
  - Product use in unapproved indication [Unknown]
